FAERS Safety Report 11965585 (Version 3)
Quarter: 2016Q2

REPORT INFORMATION
  Report Type: Spontaneous
  Country: US (occurrence: US)
  Receive Date: 20160127
  Receipt Date: 20160606
  Transmission Date: 20160815
  Serious: Yes (Hospitalization, Disabling, Other)
  Sender: FDA-Public Use
  Company Number: US-ENDO PHARMACEUTICALS INC.-2016-000520

PATIENT
  Age: 60 Year
  Sex: Male
  Weight: 88.53 kg

DRUGS (3)
  1. AXIRON [Suspect]
     Active Substance: TESTOSTERONE
     Indication: ANDROGEN REPLACEMENT THERAPY
     Route: 065
     Dates: end: 20140324
  2. TESTIM [Suspect]
     Active Substance: TESTOSTERONE
     Indication: ANDROGEN REPLACEMENT THERAPY
     Route: 062
     Dates: start: 20100131, end: 20100828
  3. VICODIN [Concomitant]
     Active Substance: ACETAMINOPHEN\HYDROCODONE BITARTRATE
     Indication: INTERVERTEBRAL DISC DEGENERATION
     Route: 065
     Dates: start: 200911

REACTIONS (6)
  - Coronary artery disease [Unknown]
  - Atrial fibrillation [Unknown]
  - Hyperlipidaemia [Unknown]
  - Cerebrovascular accident [Not Recovered/Not Resolved]
  - Hypertension [Unknown]
  - Anxiety disorder [Unknown]

NARRATIVE: CASE EVENT DATE: 201008
